FAERS Safety Report 4494972-7 (Version None)
Quarter: 2004Q4

REPORT INFORMATION
  Report Type: 
  Country: None (occurrence: None)
  Receive Date: 20041105
  Receipt Date: 20041105
  Transmission Date: 20050328
  Serious: Yes (Death)
  Sender: FDA-Public Use
  Company Number: None

PATIENT
  Age: 61 Year
  Sex: Male
  Weight: 77.1115 kg

DRUGS (3)
  1. ZOLOFT [Suspect]
     Indication: DEPRESSION
     Dosage: 50 MG    DAILY    ORAL
     Route: 048
     Dates: start: 20040210, end: 20040311
  2. ZOLOFT [Suspect]
     Indication: STRESS SYMPTOMS
     Dosage: 50 MG    DAILY    ORAL
     Route: 048
     Dates: start: 20040210, end: 20040311
  3. SLEEPING PILL [Concomitant]

REACTIONS (1)
  - COMPLETED SUICIDE [None]
